FAERS Safety Report 5827142-8 (Version None)
Quarter: 2008Q3

REPORT INFORMATION
  Report Type: 
  Country: None (occurrence: None)
  Receive Date: 20080730
  Receipt Date: 20080724
  Transmission Date: 20090109
  Serious: Yes (Hospitalization)
  Sender: FDA-Public Use
  Company Number: US-WYE-H05247808

PATIENT
  Sex: Male

DRUGS (1)
  1. TYGACIL [Suspect]
     Indication: PERITONITIS
     Route: 042

REACTIONS (1)
  - CHOLESTASIS [None]
